FAERS Safety Report 7223126-6 (Version None)
Quarter: 2011Q1

REPORT INFORMATION
  Report Type: 
  Country: None (occurrence: None)
  Receive Date: 20110112
  Receipt Date: 20100121
  Transmission Date: 20110831
  Serious: No
  Sender: FDA-Public Use
  Company Number: US-ALLERGAN-1000835US

PATIENT
  Sex: Female

DRUGS (13)
  1. ZOLOFT [Concomitant]
  2. AMBIEN [Concomitant]
  3. ATENOLOL [Concomitant]
  4. VIT D [Concomitant]
  5. VIT 12 [Concomitant]
  6. LYRICA [Concomitant]
  7. PLAQUENIL [Concomitant]
     Indication: SYSTEMIC LUPUS ERYTHEMATOSUS
  8. FLEXERIL [Concomitant]
  9. SYNTHROID [Concomitant]
  10. TYLENOL-500 [Concomitant]
     Indication: ARTHRITIS
  11. NUVIGIL [Concomitant]
  12. CLARITIN [Concomitant]
  13. RESTASIS [Suspect]
     Indication: DRY EYE
     Dosage: 1 GTT, BID
     Dates: start: 20091230

REACTIONS (1)
  - VITREOUS FLOATERS [None]
